FAERS Safety Report 5441663-1 (Version None)
Quarter: 2007Q3

REPORT INFORMATION
  Report Type: 
  Country: None (occurrence: None)
  Receive Date: 20070904
  Receipt Date: 20070827
  Transmission Date: 20080115
  Serious: Yes (Other)
  Sender: FDA-Public Use
  Company Number: US-ASTRAZENECA-2007UW20441

PATIENT
  Age: 65 Year
  Sex: Female
  Weight: 49.9 kg

DRUGS (8)
  1. FASLODEX [Suspect]
     Indication: BREAST CANCER
     Route: 030
     Dates: start: 20070501
  2. ARIMIDEX [Concomitant]
     Indication: BREAST CANCER
     Route: 048
     Dates: start: 20060101, end: 20070101
  3. IMODIUM [Concomitant]
  4. FORTEO [Concomitant]
  5. LASIX [Concomitant]
  6. PEPCID [Concomitant]
  7. VITAMINS [Concomitant]
  8. AMINO ACID DRIP [Concomitant]

REACTIONS (3)
  - BRONCHOSPASM [None]
  - COUGH [None]
  - DYSPNOEA [None]
